FAERS Safety Report 6737720-X (Version None)
Quarter: 2010Q2

REPORT INFORMATION
  Report Type: 
  Country: None (occurrence: None)
  Receive Date: 20100524
  Receipt Date: 20100513
  Transmission Date: 20101027
  Serious: Yes (Hospitalization)
  Sender: FDA-Public Use
  Company Number: PHHO2010US06642

PATIENT
  Age: 68 Year
  Sex: Male
  Weight: 93.878 kg

DRUGS (12)
  1. AFINITOR [Suspect]
     Indication: RENAL CELL CARCINOMA
     Dosage: UNK
     Route: 048
     Dates: start: 20100406, end: 20100422
  2. SORAFENIB [Suspect]
     Indication: RENAL CELL CARCINOMA
     Dosage: UNK
     Route: 048
     Dates: start: 20100406, end: 20100422
  3. ASPIRIN [Concomitant]
  4. FUROSEMIDE [Concomitant]
  5. HYDROCHLOROTHIAZIDE [Concomitant]
  6. FLAGYL [Concomitant]
  7. LANTUS [Concomitant]
  8. AMBIEN [Concomitant]
     Indication: INSOMNIA
  9. LASIX [Concomitant]
  10. HUMALOG [Concomitant]
  11. LISINOPRIL [Concomitant]
  12. NIFEDIPINE [Concomitant]

REACTIONS (11)
  - ABDOMINAL PAIN [None]
  - ACUTE PRERENAL FAILURE [None]
  - CHEST PAIN [None]
  - DEHYDRATION [None]
  - DIARRHOEA [None]
  - HYPOVOLAEMIA [None]
  - NAUSEA [None]
  - PAIN IN EXTREMITY [None]
  - PERIPHERAL ARTERIAL OCCLUSIVE DISEASE [None]
  - THROMBECTOMY [None]
  - VOMITING [None]
